FAERS Safety Report 8974776 (Version 1)
Quarter: 2012Q4

REPORT INFORMATION
  Report Type: Spontaneous
  Country: US (occurrence: None)
  Receive Date: 20121218
  Receipt Date: 20121218
  Transmission Date: 20130627
  Serious: Yes (Other)
  Sender: FDA-Public Use
  Company Number: None

PATIENT
  Sex: Female

DRUGS (4)
  1. ACTHAR [Suspect]
     Indication: NEPHROTIC SYNDROME
     Dosage: 40 units Monday and Friday SQ
     Route: 058
     Dates: start: 20121016
  2. ACTHAR [Suspect]
     Indication: PROTEINURIA
     Dosage: 40 units Monday and Friday SQ
     Route: 058
     Dates: start: 20121016
  3. VIT D [Concomitant]
  4. ENALAPRIL [Concomitant]

REACTIONS (3)
  - Acne [None]
  - Headache [None]
  - Weight increased [None]
